FAERS Safety Report 17956182 (Version 2)
Quarter: 2020Q3

REPORT INFORMATION
  Report Type: Spontaneous
  Country: JP (occurrence: JP)
  Receive Date: 20200629
  Receipt Date: 20200702
  Transmission Date: 20201103
  Serious: Yes (Hospitalization, Other)
  Sender: FDA-Public Use
  Company Number: JP-ASTELLAS-2020JP005030

PATIENT
  Age: 58 Year
  Sex: Male

DRUGS (12)
  1. VORICONAZOLE. [Interacting]
     Active Substance: VORICONAZOLE
     Route: 048
  2. EVEROLIMUS. [Interacting]
     Active Substance: EVEROLIMUS
     Dosage: UNK UNK, UNKNOWN FREQ.
     Route: 065
  3. GRACEPTOR [Suspect]
     Active Substance: TACROLIMUS
     Indication: IMMUNOSUPPRESSION
     Dosage: UNK UNK, UNKNOWN FREQ.
     Route: 048
  4. MYCOPHENOLATE MOFETIL. [Suspect]
     Active Substance: MYCOPHENOLATE MOFETIL
     Indication: PRODUCT USED FOR UNKNOWN INDICATION
     Dosage: UNK UNK, UNKNOWN FREQ.
     Route: 065
  5. GRACEPTOR [Suspect]
     Active Substance: TACROLIMUS
     Route: 065
  6. MICAFUNGIN. [Suspect]
     Active Substance: MICAFUNGIN SODIUM
     Indication: BRONCHOPULMONARY ASPERGILLOSIS
     Dosage: UNK UNK, UNKNOWN FREQ.
     Route: 065
  7. VORICONAZOLE. [Interacting]
     Active Substance: VORICONAZOLE
     Indication: BRONCHOPULMONARY ASPERGILLOSIS
     Dosage: UNK UNK, UNKNOWN FREQ.
     Route: 048
  8. EVEROLIMUS. [Interacting]
     Active Substance: EVEROLIMUS
     Indication: BRONCHOPULMONARY ASPERGILLOSIS
     Dosage: 0.75 MG, TWICE DAILY
     Route: 065
  9. GRACEPTOR [Suspect]
     Active Substance: TACROLIMUS
     Dosage: 0.5 MG, EVERY 3 DAYS
     Route: 048
  10. EVEROLIMUS. [Interacting]
     Active Substance: EVEROLIMUS
     Dosage: 0.25 MG/DAY, UNKNOWN FREQ.
     Route: 065
  11. GRACEPTOR [Suspect]
     Active Substance: TACROLIMUS
     Dosage: 0.5 MG, EVERY OTHER DAY
     Route: 048
  12. VORICONAZOLE. [Interacting]
     Active Substance: VORICONAZOLE
     Dosage: UNK UNK, UNKNOWN FREQ.
     Route: 048

REACTIONS (5)
  - Infectious pleural effusion [Recovering/Resolving]
  - Polyomavirus viraemia [Unknown]
  - Drug level increased [Unknown]
  - Drug interaction [Unknown]
  - Bronchopulmonary aspergillosis [Unknown]
